FAERS Safety Report 15362833 (Version 3)
Quarter: 2019Q1

REPORT INFORMATION
  Report Type: Report from Study
  Country: DE (occurrence: DE)
  Receive Date: 20180907
  Receipt Date: 20190329
  Transmission Date: 20190417
  Serious: Yes (Death, Life-Threatening, Hospitalization, Disabling)
  Sender: FDA-Public Use
  Company Number: DE-JNJFOC-20180435339

PATIENT
  Age: 57 Year
  Sex: Male

DRUGS (9)
  1. IBRUTINIB [Suspect]
     Active Substance: IBRUTINIB
     Indication: CHRONIC LYMPHOCYTIC LEUKAEMIA
     Route: 048
     Dates: start: 20150120, end: 20180307
  2. VITAMIN B12 [Concomitant]
     Active Substance: CYANOCOBALAMIN
     Route: 065
  3. PANTOPRAZOLE [Concomitant]
     Active Substance: PANTOPRAZOLE
     Route: 048
  4. FOLIC ACID. [Concomitant]
     Active Substance: FOLIC ACID
     Route: 048
  5. METOPROLOL. [Concomitant]
     Active Substance: METOPROLOL
     Route: 048
  6. ACETYLSALICYLIC ACID [Concomitant]
     Active Substance: ASPIRIN
     Route: 048
  7. MACROGOL [Concomitant]
     Active Substance: POLYETHYLENE GLYCOLS
     Route: 048
  8. DALTEPARIN [Suspect]
     Active Substance: DALTEPARIN
     Indication: PRODUCT USED FOR UNKNOWN INDICATION
     Route: 065
  9. RAMIPRIL. [Concomitant]
     Active Substance: RAMIPRIL
     Route: 048

REACTIONS (2)
  - Cardiac arrest [Fatal]
  - Subarachnoid haemorrhage [Recovered/Resolved with Sequelae]

NARRATIVE: CASE EVENT DATE: 20180307
